FAERS Safety Report 7225034-3 (Version None)
Quarter: 2011Q1

REPORT INFORMATION
  Report Type: 
  Country: None (occurrence: None)
  Receive Date: 20110113
  Receipt Date: 20110112
  Transmission Date: 20110831
  Serious: Yes (Other)
  Sender: FDA-Public Use
  Company Number: IT-AMGEN-QUU408181

PATIENT

DRUGS (2)
  1. RIBAVIRIN AND INTERFERON ALFA-2B [Concomitant]
  2. NEUPOGEN [Suspect]
     Indication: NEUTROPENIA

REACTIONS (3)
  - NEUTROPENIA [None]
  - PSORIASIS [None]
  - AGRANULOCYTOSIS [None]
